FAERS Safety Report 12073250 (Version 1)
Quarter: 2016Q1

REPORT INFORMATION
  Report Type: Other
  Country: US (occurrence: US)
  Receive Date: 20160212
  Receipt Date: 20160212
  Transmission Date: 20160526
  Serious: Yes (Life-Threatening, Hospitalization)
  Sender: FDA-Public Use
  Company Number: US-B. BRAUN MEDICAL INC.-1047739

PATIENT
  Age: 26 Year
  Sex: Female

DRUGS (1)
  1. HEPARIN SODIUM AND DEXTROSE [Suspect]
     Active Substance: HEPARIN SODIUM
     Indication: PULMONARY EMBOLISM
     Route: 042

REACTIONS (6)
  - Vasculitis [None]
  - Microscopic polyangiitis [None]
  - Glomerulonephritis rapidly progressive [None]
  - Pulmonary embolism [None]
  - Glomerulonephritis [None]
  - Pulmonary alveolar haemorrhage [Recovering/Resolving]
